FAERS Safety Report 7010526-2 (Version None)
Quarter: 2010Q3

REPORT INFORMATION
  Report Type: 
  Country: None (occurrence: None)
  Receive Date: 20100923
  Receipt Date: 20100922
  Transmission Date: 20110219
  Serious: Yes (Hospitalization)
  Sender: FDA-Public Use
  Company Number: A0882598A

PATIENT
  Age: 37 Year
  Sex: Male

DRUGS (2)
  1. NICODERM CQ [Suspect]
     Indication: SMOKING CESSATION THERAPY
     Route: 062
     Dates: end: 20081025
  2. ZYBAN [Concomitant]
     Indication: SMOKING CESSATION THERAPY
     Route: 048

REACTIONS (11)
  - ABASIA [None]
  - ADVERSE EVENT [None]
  - APHASIA [None]
  - CEREBROVASCULAR ACCIDENT [None]
  - FALL [None]
  - FATIGUE [None]
  - HEMIPLEGIA [None]
  - INTENTIONAL DRUG MISUSE [None]
  - MONOPLEGIA [None]
  - ROAD TRAFFIC ACCIDENT [None]
  - VIITH NERVE PARALYSIS [None]
